FAERS Safety Report 9905367 (Version 2)
Quarter: 2014Q1

REPORT INFORMATION
  Report Type: Spontaneous
  Country: US (occurrence: None)
  Receive Date: 20130305
  Receipt Date: 20140306
  Transmission Date: 20141002
  Serious: Yes (Other)
  Sender: FDA-Public Use
  Company Number: 163-21880-12041581

PATIENT
  Age: 59 Year
  Sex: Female
  Weight: 82.56 kg

DRUGS (14)
  1. REVLIMID [Suspect]
     Indication: PLASMA CELL MYELOMA
     Dosage: 10 MG, 1 IN 1 D, PO
     Route: 048
     Dates: start: 20110914
  2. CIPRO (CIPROFLOXACIN) (UNKNOWN) [Concomitant]
  3. ANTIBIOTICS (ANTIBIOTICS) (UNKNOWN) [Concomitant]
  4. ZOMETA (ZOLEDRONIC ACID) (UNKNOWN) [Concomitant]
  5. VITAMIN D (ERGOCALCIFEROL) (UNKNOWN) [Concomitant]
  6. LEVOTHYROXINE (LEVOTHYROXINE) (UNKNOWN) [Concomitant]
  7. SIMVASTATIN (SIMVASTATIN) (UNKNOWN) [Concomitant]
  8. ACYCLOVIR (ACICLOVIR) (UNKNOWN) [Concomitant]
  9. HYDROCHLOROTHIAZIDE (HYDROCHLOROTHIAZIDE) (UNKNOWN) [Concomitant]
  10. FISH OIL (FISH OIL) (UNKNOWN) [Concomitant]
  11. METOPROLOL (METOPROLOL) (UNKNOWN) [Concomitant]
  12. CALCIUM WITH VITAMIN D (CALCIUM WITH  VITAMIN D) (UNKNOWN) [Concomitant]
  13. BACTRIM DS (BACTRIM) (UNKNOWN) [Concomitant]
  14. MULTIVITAMIN (MULTIVITAMINS) (UNKNOWN) [Concomitant]

REACTIONS (2)
  - Platelet count decreased [None]
  - Fatigue [None]
